FAERS Safety Report 20258575 (Version 1)
Quarter: 2021Q4

REPORT INFORMATION
  Report Type: Spontaneous
  Country: US (occurrence: None)
  Receive Date: 20211229
  Receipt Date: 20211229
  Transmission Date: 20220303
  Serious: Yes (Hospitalization, Other)
  Sender: FDA-Public Use
  Company Number: None

PATIENT
  Age: 33 Year
  Sex: Female
  Weight: 78.93 kg

DRUGS (2)
  1. ZOLOFT [Suspect]
     Active Substance: SERTRALINE HYDROCHLORIDE
  2. REMERON [Suspect]
     Active Substance: MIRTAZAPINE

REACTIONS (3)
  - Nausea [None]
  - Vomiting [None]
  - Exposure during pregnancy [None]

NARRATIVE: CASE EVENT DATE: 20200905
